FAERS Safety Report 5673054-2 (Version None)
Quarter: 2008Q1

REPORT INFORMATION
  Report Type: 
  Country: None (occurrence: None)
  Receive Date: 20080319
  Receipt Date: 20080117
  Transmission Date: 20080703
  Serious: No
  Sender: FDA-Public Use
  Company Number: US-ASTRAZENECA-2008UW01336

PATIENT
  Sex: Female

DRUGS (3)
  1. SYMBICORT [Suspect]
     Indication: BRONCHITIS
     Dosage: 80 UG
     Route: 055
  2. ANTIBIOTIC [Concomitant]
  3. PREDNISONE [Concomitant]

REACTIONS (1)
  - CHEST PAIN [None]
